FAERS Safety Report 14324077 (Version 1)
Quarter: 2017Q4

REPORT INFORMATION
  Report Type: Spontaneous
  Country: US (occurrence: US)
  Receive Date: 20171222
  Receipt Date: 20171222
  Transmission Date: 20180321
  Serious: Yes (Death)
  Sender: FDA-Public Use
  Company Number: None

PATIENT
  Age: 47 Year
  Sex: Female

DRUGS (1)
  1. IBRANCE [Suspect]
     Active Substance: PALBOCICLIB
     Indication: PENILE CANCER
     Route: 048
     Dates: start: 20150622, end: 20171213

REACTIONS (1)
  - Death [None]

NARRATIVE: CASE EVENT DATE: 20171213
